FAERS Safety Report 4276200-0 (Version None)
Quarter: 2004Q1

REPORT INFORMATION
  Report Type: 
  Country: None (occurrence: None)
  Receive Date: 20040121
  Receipt Date: 20030316
  Transmission Date: 20041129
  Serious: No
  Sender: FDA-Public Use
  Company Number: US-GLAXOSMITHKLINE-A0400624A

PATIENT

DRUGS (1)
  1. ZIAGEN [Suspect]
     Route: 048
     Dates: start: 20030313, end: 20030301

REACTIONS (5)
  - ABDOMINAL DISCOMFORT [None]
  - CHILLS [None]
  - HYPERSENSITIVITY [None]
  - MYALGIA [None]
  - PYREXIA [None]
